APPROVED DRUG PRODUCT: IDARUBICIN HYDROCHLORIDE
Active Ingredient: IDARUBICIN HYDROCHLORIDE
Strength: 5MG/5ML (1MG/ML)
Dosage Form/Route: SOLUTION;INTRAVENOUS
Application: A065036 | Product #001 | TE Code: AP
Applicant: MEITHEAL PHARMACEUTICALS INC
Approved: May 1, 2002 | RLD: No | RS: No | Type: RX